FAERS Safety Report 24765668 (Version 2)
Quarter: 2025Q1

REPORT INFORMATION
  Report Type: Report from Study
  Country: IT (occurrence: IT)
  Receive Date: 20241223
  Receipt Date: 20250102
  Transmission Date: 20250408
  Serious: Yes (Death, Hospitalization)
  Sender: ROCHE
  Company Number: IT-ROCHE-10000162478

PATIENT
  Sex: Male
  Weight: 98 kg

DRUGS (1)
  1. RISDIPLAM [Suspect]
     Active Substance: RISDIPLAM
     Indication: Spinal muscular atrophy
     Route: 048
     Dates: start: 20210121

REACTIONS (1)
  - Pneumonia [Fatal]
